FAERS Safety Report 8996178 (Version 1)
Quarter: 2013Q1

REPORT INFORMATION
  Report Type: Spontaneous
  Country: FR (occurrence: FR)
  Receive Date: 20130103
  Receipt Date: 20130103
  Transmission Date: 20140127
  Serious: Yes (Hospitalization)
  Sender: FDA-Public Use
  Company Number: PHHY2012FR121353

PATIENT
  Age: 86 Year
  Sex: Female

DRUGS (9)
  1. EXELON [Suspect]
     Dosage: 3 MG, TID
     Route: 048
     Dates: start: 20120907, end: 20121126
  2. FLAGYL [Suspect]
     Dosage: 1 DF, Q4H
     Route: 048
     Dates: start: 201211, end: 201211
  3. BISOCE [Concomitant]
     Dosage: 1 DF DAILY
  4. INEXIUM//ESOMEPRAZOLE MAGNESIUM [Concomitant]
     Dosage: 1 DF DAILY
  5. LASILIX [Concomitant]
     Dosage: 1 DF DAILY
  6. LIPANTHYL [Concomitant]
     Dosage: 1 DF DAILY
  7. PREVISCAN [Concomitant]
     Dosage: 0.25 DF DAILY
  8. STILNOX [Concomitant]
     Dosage: UNK
  9. SMECTA [Concomitant]
     Dosage: UNK

REACTIONS (6)
  - Convulsion [Recovered/Resolved]
  - Loss of consciousness [Unknown]
  - Chills [Unknown]
  - Grand mal convulsion [Unknown]
  - Malaise [Unknown]
  - Confusional state [Unknown]
